FAERS Safety Report 7350451-0 (Version None)
Quarter: 2011Q1

REPORT INFORMATION
  Report Type: 
  Country: None (occurrence: None)
  Receive Date: 20110314
  Receipt Date: 20110309
  Transmission Date: 20110831
  Serious: Yes (Life-Threatening, Hospitalization, Other)
  Sender: FDA-Public Use
  Company Number: CH-ASTRAZENECA-2011SE13406

PATIENT
  Age: 8 Year
  Sex: Male

DRUGS (2)
  1. ANTIBIOTICS [Concomitant]
  2. PROPOFOL [Suspect]
     Route: 042

REACTIONS (11)
  - TRAUMATIC BRAIN INJURY [None]
  - SUBARACHNOID HAEMORRHAGE [None]
  - SEPTIC SHOCK [None]
  - NEUROLOGICAL EXAMINATION ABNORMAL [None]
  - FALL [None]
  - RENAL FAILURE ACUTE [None]
  - CEREBRAL HAEMATOMA [None]
  - HAEMODIALYSIS [None]
  - ENDOTRACHEAL INTUBATION [None]
  - SEDATION [None]
  - LOSS OF CONSCIOUSNESS [None]
